FAERS Safety Report 5762328-2 (Version None)
Quarter: 2008Q2

REPORT INFORMATION
  Report Type: 
  Country: None (occurrence: None)
  Receive Date: 20080609
  Receipt Date: 20080530
  Transmission Date: 20081010
  Serious: Yes (Other)
  Sender: FDA-Public Use
  Company Number: PHBS2007BR15708

PATIENT
  Sex: Male
  Weight: 142 kg

DRUGS (2)
  1. EXFORGE [Suspect]
     Indication: HYPERTENSION
     Dosage: VALS 160 / AMLO 5 MG/DAY
     Route: 048
     Dates: start: 20060101
  2. AVANTAMET [Concomitant]
     Indication: DIABETES MELLITUS
     Dosage: 4/500 MG, QD
     Route: 048

REACTIONS (3)
  - BLOOD PRESSURE FLUCTUATION [None]
  - ERECTILE DYSFUNCTION [None]
  - HYPERSOMNIA [None]
